FAERS Safety Report 7714424 (Version 4)
Quarter: 2013Q1

REPORT INFORMATION
  Report Type: Spontaneous
  Country: FR (occurrence: FR)
  Receive Date: 20040826
  Receipt Date: 20130320
  Transmission Date: 20140127
  Serious: Yes (Hospitalization)
  Sender: FDA-Public Use
  Company Number: FR-JNJFOC-20040703149

PATIENT
  Age: 10 Year
  Sex: Female

DRUGS (4)
  1. IBUPROFEN CHILDRENS [Suspect]
     Indication: PHARYNGITIS
     Dosage: ^USUAL DOSES^
     Route: 048
  2. IBUPROFEN CHILDRENS [Suspect]
     Indication: PYREXIA
     Dosage: ^USUAL DOSES^
     Route: 048
  3. OXATOMIDE [Concomitant]
  4. BETAMETHASONE [Concomitant]

REACTIONS (2)
  - Vanishing bile duct syndrome [Recovered/Resolved]
  - Stevens-Johnson syndrome [Recovered/Resolved]
